FAERS Safety Report 6269719-4 (Version None)
Quarter: 2009Q3

REPORT INFORMATION
  Report Type: 
  Country: None (occurrence: None)
  Receive Date: 20090716
  Receipt Date: 20090709
  Transmission Date: 20100115
  Serious: Yes (Hospitalization, Other)
  Sender: FDA-Public Use
  Company Number: US-ELI_LILLY_AND_COMPANY-US200904002907

PATIENT
  Sex: Female
  Weight: 75.737 kg

DRUGS (8)
  1. FORTEO [Suspect]
     Indication: OSTEOPOROSIS
     Dosage: UNK, UNK
     Dates: start: 20070501, end: 20090522
  2. CYMBALTA [Concomitant]
     Dosage: 50 MG, UNK
     Dates: start: 20080101
  3. FIORICET [Concomitant]
  4. PRILOSEC [Concomitant]
     Dosage: UNK, EACH MORNING
  5. TENORMIN [Concomitant]
     Indication: BLOOD PRESSURE
  6. PREDNISONE TAB [Concomitant]
  7. LEVOTHROID [Concomitant]
  8. LASIX [Concomitant]

REACTIONS (10)
  - ARTHRALGIA [None]
  - FALL [None]
  - FEMUR FRACTURE [None]
  - FIBROMYALGIA [None]
  - HIP FRACTURE [None]
  - MUSCLE TIGHTNESS [None]
  - MYALGIA [None]
  - POLYMYALGIA RHEUMATICA [None]
  - UPPER LIMB FRACTURE [None]
  - WRIST FRACTURE [None]
